FAERS Safety Report 8553187-3 (Version None)
Quarter: 2012Q3

REPORT INFORMATION
  Report Type: 
  Country: None (occurrence: None)
  Receive Date: 20120731
  Receipt Date: 20120724
  Transmission Date: 20120928
  Serious: Yes (Other)
  Sender: FDA-Public Use
  Company Number: AR-JNJFOC-20120713553

PATIENT
  Age: 80 Year
  Sex: Female

DRUGS (6)
  1. CARVEDILOL [Concomitant]
     Indication: CARDIAC FAILURE
     Route: 048
  2. XARELTO [Suspect]
     Indication: CEREBROVASCULAR ACCIDENT PROPHYLAXIS
     Route: 048
     Dates: start: 20120625, end: 20120720
  3. ALPRAZOLAM [Suspect]
     Indication: PRODUCT USED FOR UNKNOWN INDICATION
     Route: 048
  4. ENALAPRIL MALEATE [Concomitant]
  5. XARELTO [Suspect]
     Indication: ATRIAL FIBRILLATION
     Route: 048
     Dates: start: 20120625, end: 20120720
  6. MODURETIC 5-50 [Concomitant]
     Indication: CARDIAC FAILURE
     Route: 048

REACTIONS (4)
  - MELAENA [None]
  - HEADACHE [None]
  - CARDIAC FAILURE [None]
  - ANAEMIA [None]
